FAERS Safety Report 8438004-4 (Version None)
Quarter: 2012Q2

REPORT INFORMATION
  Report Type: 
  Country: None (occurrence: None)
  Receive Date: 20120614
  Receipt Date: 20120606
  Transmission Date: 20120825
  Serious: No
  Sender: FDA-Public Use
  Company Number: US-AMGEN-USASP2012031977

PATIENT
  Age: 47 Year
  Sex: Female
  Weight: 53.968 kg

DRUGS (1)
  1. PROLIA [Suspect]
     Indication: OSTEOPOROSIS
     Dosage: 60 MG, Q6MO
     Dates: start: 20120111

REACTIONS (3)
  - SPINAL PAIN [None]
  - MUSCULOSKELETAL CHEST PAIN [None]
  - DIZZINESS [None]
